FAERS Safety Report 12527605 (Version 1)
Quarter: 2016Q3

REPORT INFORMATION
  Report Type: Spontaneous
  Country: DK (occurrence: DK)
  Receive Date: 20160705
  Receipt Date: 20160705
  Transmission Date: 20161109
  Serious: Yes (Other)
  Sender: FDA-Public Use
  Company Number: DK-ROCHE-1787065

PATIENT
  Age: 67 Year
  Sex: Male

DRUGS (1)
  1. XOLAIR [Suspect]
     Active Substance: OMALIZUMAB
     Indication: DERMATITIS ATOPIC
     Route: 058

REACTIONS (7)
  - Dermatitis exfoliative [Unknown]
  - Chills [Unknown]
  - Lymphadenopathy [Unknown]
  - Influenza like illness [Unknown]
  - Off label use [Unknown]
  - Treatment failure [Unknown]
  - Body temperature increased [Unknown]
